FAERS Safety Report 7149113-4 (Version None)
Quarter: 2010Q4

REPORT INFORMATION
  Report Type: 
  Country: None (occurrence: None)
  Receive Date: 20101209
  Receipt Date: 20101202
  Transmission Date: 20110411
  Serious: Yes (Hospitalization, Other)
  Sender: FDA-Public Use
  Company Number: US-MERCK-0812USA04683

PATIENT
  Age: 64 Year
  Sex: Female

DRUGS (2)
  1. FOSAMAX [Suspect]
     Indication: OSTEOPOROSIS
     Route: 048
     Dates: start: 19980701, end: 20060701
  2. FOSAMAX [Suspect]
     Route: 048
     Dates: start: 20000201

REACTIONS (11)
  - ANAEMIA [None]
  - GASTRIC ULCER [None]
  - IMPAIRED HEALING [None]
  - OSTEOMYELITIS [None]
  - OSTEONECROSIS OF JAW [None]
  - POST PROCEDURAL FISTULA [None]
  - THALASSAEMIA BETA [None]
  - TOOTH ABSCESS [None]
  - TOOTH DISORDER [None]
  - TOOTH FRACTURE [None]
  - UPPER GASTROINTESTINAL HAEMORRHAGE [None]
